FAERS Safety Report 21498439 (Version 2)
Quarter: 2022Q4

REPORT INFORMATION
  Report Type: Spontaneous
  Country: BR (occurrence: BR)
  Receive Date: 20221024
  Receipt Date: 20221104
  Transmission Date: 20230113
  Serious: Yes (Life-Threatening, Other)
  Sender: FDA-Public Use
  Company Number: BR-CELLTRION INC.-2022BR017024

PATIENT

DRUGS (2)
  1. INFLIXIMAB [Suspect]
     Active Substance: INFLIXIMAB
     Indication: Prophylaxis
     Dosage: 3 BOXES EVERY 2 MONTHS/EVERY 15 DAYS, THEN 28 DAYS AND AFTER THAT EVERY 2 MONTHS
     Dates: start: 20220830
  2. INFLIXIMAB [Suspect]
     Active Substance: INFLIXIMAB
     Dosage: 3 BOXES EVERY 2 MONTHS/EVERY 15 DAYS, THEN 28 DAYS AND AFTER THAT EVERY 2 MONTHS
     Dates: start: 20221006

REACTIONS (4)
  - Dyschezia [Unknown]
  - Abdominal distension [Unknown]
  - Pain [Unknown]
  - Intentional dose omission [Unknown]
